FAERS Safety Report 6803944-6 (Version None)
Quarter: 2010Q2

REPORT INFORMATION
  Report Type: 
  Country: None (occurrence: None)
  Receive Date: 20100628
  Receipt Date: 20060224
  Transmission Date: 20101027
  Serious: No
  Sender: FDA-Public Use
  Company Number: US-PFIZER INC-2006030490

PATIENT
  Sex: Male
  Weight: 110.68 kg

DRUGS (6)
  1. SU-011,248 [Suspect]
     Indication: RENAL CANCER
     Route: 048
     Dates: start: 20060201
  2. NEXIUM [Concomitant]
     Route: 065
  3. TOPROL-XL [Concomitant]
     Route: 065
  4. CATAPRES [Concomitant]
     Route: 065
  5. VITAMIN TAB [Concomitant]
     Route: 065
     Dates: end: 20060201
  6. OXYCONTIN [Concomitant]
     Route: 065

REACTIONS (4)
  - BLOOD GLUCOSE INCREASED [None]
  - GLUCOSE URINE PRESENT [None]
  - PROTEIN URINE PRESENT [None]
  - URINE COLOUR ABNORMAL [None]
